FAERS Safety Report 19488882 (Version 1)
Quarter: 2021Q3

REPORT INFORMATION
  Report Type: Spontaneous
  Country: CA (occurrence: CA)
  Receive Date: 20210702
  Receipt Date: 20210702
  Transmission Date: 20211014
  Serious: Yes (Other)
  Sender: FDA-Public Use
  Company Number: CA-ROCHE-2859557

PATIENT
  Sex: Male

DRUGS (14)
  1. ACTEMRA [Suspect]
     Active Substance: TOCILIZUMAB
     Indication: LIMBIC ENCEPHALITIS
  2. PREDNISONE. [Concomitant]
     Active Substance: PREDNISONE
  3. ACTEMRA [Suspect]
     Active Substance: TOCILIZUMAB
     Indication: NEOPLASM
     Route: 058
  4. CLOBAZAM. [Concomitant]
     Active Substance: CLOBAZAM
  5. ACTEMRA [Suspect]
     Active Substance: TOCILIZUMAB
     Indication: LIMBIC ENCEPHALITIS
  6. ZYPREXA [Concomitant]
     Active Substance: OLANZAPINE
  7. ACTEMRA [Suspect]
     Active Substance: TOCILIZUMAB
     Indication: LIMBIC ENCEPHALITIS
  8. ALENDRONATE SODIUM. [Concomitant]
     Active Substance: ALENDRONATE SODIUM
  9. CALCIUM [Concomitant]
     Active Substance: CALCIUM
  10. ACTEMRA [Suspect]
     Active Substance: TOCILIZUMAB
     Indication: NEOPLASM
     Route: 065
  11. ACTEMRA [Suspect]
     Active Substance: TOCILIZUMAB
     Indication: NEOPLASM
     Route: 042
  12. RITUXIMAB. [Suspect]
     Active Substance: RITUXIMAB
     Indication: LIMBIC ENCEPHALITIS
     Route: 065
  13. APTIOM [Concomitant]
     Active Substance: ESLICARBAZEPINE ACETATE
  14. SEPTRA [Concomitant]
     Active Substance: SULFAMETHOXAZOLE\TRIMETHOPRIM

REACTIONS (1)
  - Seizure [Unknown]
